FAERS Safety Report 17949439 (Version 1)
Quarter: 2020Q2

REPORT INFORMATION
  Report Type: Spontaneous
  Country: DE (occurrence: DE)
  Receive Date: 20200626
  Receipt Date: 20200626
  Transmission Date: 20200714
  Serious: Yes (Other)
  Sender: FDA-Public Use
  Company Number: DE-ACCORD-186900

PATIENT
  Sex: Female

DRUGS (1)
  1. QUETIAPIN ACCORD [Suspect]
     Active Substance: QUETIAPINE
     Indication: PRODUCT USED FOR UNKNOWN INDICATION
     Dosage: DURATION: FOR WEEKS
     Route: 048

REACTIONS (4)
  - Headache [Unknown]
  - Dizziness [Unknown]
  - Circulatory collapse [Unknown]
  - Tachycardia [Unknown]
